FAERS Safety Report 19864407 (Version 1)
Quarter: 2021Q3

REPORT INFORMATION
  Report Type: Spontaneous
  Country: CA (occurrence: CA)
  Receive Date: 20210921
  Receipt Date: 20210921
  Transmission Date: 20211014
  Serious: Yes (Death, Life-Threatening, Hospitalization)
  Sender: FDA-Public Use
  Company Number: CA-BAYER-2021-211074

PATIENT
  Age: 70 Year
  Sex: Male
  Weight: 100 kg

DRUGS (12)
  1. FUROSEMIDE. [Concomitant]
     Active Substance: FUROSEMIDE
  2. TOVIAZ [Concomitant]
     Active Substance: FESOTERODINE FUMARATE
  3. ATORVASTATIN [Concomitant]
     Active Substance: ATORVASTATIN
  4. PLANTAGO SPP. [Concomitant]
  5. CIPRO [Suspect]
     Active Substance: CIPROFLOXACIN HYDROCHLORIDE
     Indication: PERINEAL INFECTION
     Dosage: 2 DF, QD
     Route: 048
  6. ENOXAPARIN [Concomitant]
     Active Substance: ENOXAPARIN
  7. PIPERACILLIN AND TAZOBACTAM [Suspect]
     Active Substance: PIPERACILLIN SODIUM\TAZOBACTAM SODIUM
     Indication: FEBRILE NEUTROPENIA
     Dosage: 4.5 G, ONCE
     Route: 042
  8. POTASSIUM CHLORIDE. [Concomitant]
     Active Substance: POTASSIUM CHLORIDE
  9. DIMENHYDRINATE. [Concomitant]
     Active Substance: DIMENHYDRINATE
  10. ACETAMINOPHEN. [Concomitant]
     Active Substance: ACETAMINOPHEN
  11. LOPERAMIDE [Concomitant]
     Active Substance: LOPERAMIDE
  12. PREDNISONE. [Concomitant]
     Active Substance: PREDNISONE

REACTIONS (2)
  - Septic shock [Fatal]
  - Clostridium difficile colitis [Fatal]
